FAERS Safety Report 18361173 (Version 1)
Quarter: 2020Q4

REPORT INFORMATION
  Report Type: Spontaneous
  Country: US (occurrence: US)
  Receive Date: 20201008
  Receipt Date: 20201008
  Transmission Date: 20210114
  Serious: No
  Sender: FDA-Public Use
  Company Number: US-VERTEX PHARMACEUTICALS-2020-019642

PATIENT
  Age: 4 Year
  Sex: Male
  Weight: 14.74 kg

DRUGS (3)
  1. ORKAMBI [Suspect]
     Active Substance: IVACAFTOR\LUMACAFTOR
     Indication: CYSTIC FIBROSIS
     Dosage: 1 DOSAGE FORM, BID (1 PACKET EVERY 12 HOURS)
     Route: 048
     Dates: start: 2020
  2. PULMOZYME [Concomitant]
     Active Substance: DORNASE ALFA
  3. STERILE WATER [Concomitant]
     Active Substance: WATER

REACTIONS (1)
  - Coeliac disease [Unknown]

NARRATIVE: CASE EVENT DATE: 202008
